FAERS Safety Report 17806846 (Version 1)
Quarter: 2020Q2

REPORT INFORMATION
  Report Type: Spontaneous
  Country: US (occurrence: US)
  Receive Date: 20200520
  Receipt Date: 20200520
  Transmission Date: 20200714
  Serious: No
  Sender: FDA-Public Use
  Company Number: US-PFIZER INC-2019340551

PATIENT
  Age: 57 Year
  Sex: Female
  Weight: 102.97 kg

DRUGS (3)
  1. DOXYCYCLINE HYCLATE. [Suspect]
     Active Substance: DOXYCYCLINE HYCLATE
     Indication: IMMUNODEFICIENCY
     Dosage: 100 MG, TWICE A DAY EVERY 2 WEEKS
     Route: 048
     Dates: start: 201905
  2. SMZ-TMP [Suspect]
     Active Substance: SULFAMETHOXAZOLE\TRIMETHOPRIM
     Indication: IMMUNODEFICIENCY
     Dosage: 400-80MG (ONE TABLET, AS REPORTED) TWICE A DAY EVERY 2 WEEKS
     Route: 048
     Dates: start: 201905
  3. CELEBREX [Suspect]
     Active Substance: CELECOXIB
     Indication: OSTEOARTHRITIS
     Dosage: 200 MG, ONCE A DAY
     Route: 048

REACTIONS (2)
  - Fungal infection [Recovered/Resolved]
  - Weight increased [Unknown]

NARRATIVE: CASE EVENT DATE: 2020
